FAERS Safety Report 13032132 (Version 1)
Quarter: 2016Q4

REPORT INFORMATION
  Report Type: Report from Study
  Country: US (occurrence: US)
  Receive Date: 20161215
  Receipt Date: 20161215
  Transmission Date: 20170207
  Serious: Yes (Death, Life-Threatening, Hospitalization, Other)
  Sender: FDA-Public Use
  Company Number: US-SAOL THERAPEUTICS-2016SAO01210

PATIENT
  Age: 44 Year
  Sex: Female

DRUGS (7)
  1. COMPOUNDED BACLOFEN [Suspect]
     Active Substance: BACLOFEN
     Indication: PAIN
     Dosage: 124.96 ?G, \DAY
     Route: 037
  2. DILAUDID [Suspect]
     Active Substance: HYDROMORPHONE HYDROCHLORIDE
     Dosage: 2.499 MG, \DAY
     Route: 037
  3. DILAUDID [Suspect]
     Active Substance: HYDROMORPHONE HYDROCHLORIDE
     Dosage: 4.998 MG, \DAY
     Route: 037
     Dates: start: 20151022
  4. KETAMINE [Suspect]
     Active Substance: KETAMINE
     Dosage: 149.96 ?G, \DAY
     Route: 037
     Dates: start: 20151022
  5. CLONIDINE. [Suspect]
     Active Substance: CLONIDINE
     Dosage: 299.91 ?G, \DAY
     Route: 037
     Dates: start: 20151022
  6. BUPIVACAINE. [Suspect]
     Active Substance: BUPIVACAINE
     Dosage: 29.991 MG, \DAY
     Route: 037
     Dates: start: 20151022
  7. COMPOUNDED BACLOFEN [Suspect]
     Active Substance: BACLOFEN
     Dosage: 199.94 ?G, \DAY
     Route: 037
     Dates: start: 20151022

REACTIONS (12)
  - Drug withdrawal syndrome [Fatal]
  - Pulmonary embolism [Fatal]
  - Unresponsive to stimuli [Unknown]
  - Oedema peripheral [Unknown]
  - Pain [Fatal]
  - Off label use [Unknown]
  - Dizziness [Fatal]
  - Sedation [Fatal]
  - Adverse drug reaction [Fatal]
  - Drug dose omission [Fatal]
  - Paraesthesia [Unknown]
  - Device alarm issue [Unknown]

NARRATIVE: CASE EVENT DATE: 20150904
